FAERS Safety Report 18667794 (Version 2)
Quarter: 2021Q1

REPORT INFORMATION
  Report Type: Spontaneous
  Country: US (occurrence: US)
  Receive Date: 20201228
  Receipt Date: 20210308
  Transmission Date: 20210419
  Serious: No
  Sender: FDA-Public Use
  Company Number: US-BIOVITRUM-2020US7854

PATIENT
  Sex: Female
  Weight: 8 kg

DRUGS (6)
  1. SYNAGIS [Suspect]
     Active Substance: PALIVIZUMAB
     Indication: PULMONARY ARTERY ATRESIA
  2. SYNAGIS [Suspect]
     Active Substance: PALIVIZUMAB
     Indication: LEFT VENTRICULAR FAILURE
  3. SYNAGIS [Suspect]
     Active Substance: PALIVIZUMAB
     Indication: CONGENITAL AORTIC ANOMALY
  4. SYNAGIS [Suspect]
     Active Substance: PALIVIZUMAB
     Indication: PATENT DUCTUS ARTERIOSUS
     Route: 030
  5. SYNAGIS [Suspect]
     Active Substance: PALIVIZUMAB
     Indication: ILLNESS
  6. SYNAGIS [Suspect]
     Active Substance: PALIVIZUMAB
     Indication: PREMATURE BABY

REACTIONS (1)
  - Weight decreased [Unknown]
